FAERS Safety Report 15567045 (Version 3)
Quarter: 2018Q4

REPORT INFORMATION
  Report Type: Report from Study
  Country: JP (occurrence: JP)
  Receive Date: 20181030
  Receipt Date: 20181129
  Transmission Date: 20190205
  Serious: Yes (Other)
  Sender: FDA-Public Use
  Company Number: JP-SA-2018SA293886

PATIENT
  Age: 76 Year
  Sex: Male
  Weight: 57 kg

DRUGS (17)
  1. AFLIBERCEPT [Suspect]
     Active Substance: AFLIBERCEPT
     Dosage: 4 MG/KG, QOW
     Route: 041
     Dates: start: 20180507, end: 20180618
  2. FLUOROURACIL. [Suspect]
     Active Substance: FLUOROURACIL
     Dosage: 1900 MG/M2, QOW
     Route: 041
     Dates: start: 20180709, end: 20180820
  3. CALCIUM FOLINATE [Suspect]
     Active Substance: LEUCOVORIN CALCIUM
     Dosage: 190 MG/M2, QOW
     Route: 065
     Dates: start: 20180709, end: 20180820
  4. DEXART [Concomitant]
     Active Substance: DEXAMETHASONE SODIUM PHOSPHATE
     Indication: PRODUCT USED FOR UNKNOWN INDICATION
     Dosage: DAILY DOSAGE: 3.3 MG, EVERY ADMINISTRATION OF ZALTRAP 100
     Route: 065
  5. FLUOROURACIL. [Suspect]
     Active Substance: FLUOROURACIL
     Dosage: 190 MG/M2, QOW
     Route: 040
     Dates: start: 20180507, end: 20180618
  6. IRINOTECAN [Suspect]
     Active Substance: IRINOTECAN
     Dosage: 120 MG/M2, QOW
     Route: 065
     Dates: start: 20180709, end: 20180820
  7. FLUOROURACIL. [Suspect]
     Active Substance: FLUOROURACIL
     Dosage: 1900 MG/M2, QOW
     Route: 041
     Dates: start: 20180402, end: 20180416
  8. FLUOROURACIL. [Suspect]
     Active Substance: FLUOROURACIL
     Dosage: 1900 MG/M2, QOW
     Route: 041
     Dates: start: 20180507, end: 20180618
  9. AFLIBERCEPT [Suspect]
     Active Substance: AFLIBERCEPT
     Indication: COLON CANCER
     Dosage: 4 MG/KG, QOW
     Route: 041
     Dates: start: 20180709, end: 20180820
  10. FLUOROURACIL. [Suspect]
     Active Substance: FLUOROURACIL
     Dosage: 190 MG/M2, QOW
     Route: 040
     Dates: start: 20180709, end: 20180820
  11. IRINOTECAN [Suspect]
     Active Substance: IRINOTECAN
     Indication: COLON CANCER
     Dosage: 120 MG/M2, QOW
     Route: 065
     Dates: start: 20180402, end: 20180416
  12. CALCIUM FOLINATE [Suspect]
     Active Substance: LEUCOVORIN CALCIUM
     Indication: COLON CANCER
     Dosage: 190 MG/M2, QOW
     Route: 065
     Dates: start: 20180402, end: 20180416
  13. CALCIUM FOLINATE [Suspect]
     Active Substance: LEUCOVORIN CALCIUM
     Dosage: 190 MG/M2, QOW
     Route: 065
     Dates: start: 20180507, end: 20180618
  14. ALOXI [Concomitant]
     Active Substance: PALONOSETRON HYDROCHLORIDE
     Indication: PRODUCT USED FOR UNKNOWN INDICATION
     Dosage: DAILY DOSAGE: 0.75 MG, EVERY ADMINISTRATION OF ZALTRAP 100
     Route: 065
  15. AFLIBERCEPT [Suspect]
     Active Substance: AFLIBERCEPT
     Dosage: 4 MG/KG, QOW
     Route: 041
     Dates: start: 20180402, end: 20180416
  16. FLUOROURACIL. [Suspect]
     Active Substance: FLUOROURACIL
     Indication: COLON CANCER
     Dosage: 190 MG/M2, QOW
     Route: 040
     Dates: start: 20180402, end: 20180416
  17. IRINOTECAN [Suspect]
     Active Substance: IRINOTECAN
     Dosage: 120 MG/M2, QOW
     Route: 065
     Dates: start: 20180507, end: 20180618

REACTIONS (1)
  - Dyskinesia [Recovered/Resolved]

NARRATIVE: CASE EVENT DATE: 20180818
